FAERS Safety Report 4655007-6 (Version None)
Quarter: 2005Q2

REPORT INFORMATION
  Report Type: 
  Country: None (occurrence: None)
  Receive Date: 20050504
  Receipt Date: 20050427
  Transmission Date: 20051028
  Serious: Yes (Other)
  Sender: FDA-Public Use
  Company Number: 200415501BCC

PATIENT
  Sex: Male

DRUGS (3)
  1. ALEVE (CAPLET) [Suspect]
     Indication: ARTHRITIS
     Dosage: ORAL
     Route: 048
  2. ALEVE (CAPLET) [Suspect]
     Indication: BACK PAIN
     Dosage: ORAL
     Route: 048
  3. ADVIL [Concomitant]

REACTIONS (4)
  - CHOKING [None]
  - DYSPEPSIA [None]
  - GASTROOESOPHAGEAL REFLUX DISEASE [None]
  - MEDICATION ERROR [None]
